FAERS Safety Report 13528112 (Version 1)
Quarter: 2017Q2

REPORT INFORMATION
  Report Type: Spontaneous
  Country: US (occurrence: US)
  Receive Date: 20170509
  Receipt Date: 20170509
  Transmission Date: 20170830
  Serious: No
  Sender: FDA-Public Use
  Company Number: US-BAYER-2017-087270

PATIENT
  Age: 68 Year
  Sex: Female
  Weight: 49 kg

DRUGS (3)
  1. VITAMIN B12 [Concomitant]
     Active Substance: CYANOCOBALAMIN
     Dosage: UNK
  2. VITAMIN D [Concomitant]
     Active Substance: CHOLECALCIFEROL
     Dosage: UNK
  3. MIRALAX [Suspect]
     Active Substance: POLYETHYLENE GLYCOL 3350
     Indication: GASTROINTESTINAL DISORDER
     Dosage: UNK, 1 CAPFUL DOSE
     Route: 048
     Dates: start: 201703, end: 20170504

REACTIONS (4)
  - Off label use [Unknown]
  - Circumstance or information capable of leading to medication error [Unknown]
  - Product use issue [None]
  - Product use in unapproved indication [Unknown]

NARRATIVE: CASE EVENT DATE: 201703
